FAERS Safety Report 4954584-5 (Version None)
Quarter: 2006Q1

REPORT INFORMATION
  Report Type: 
  Country: None (occurrence: None)
  Receive Date: 20060322
  Receipt Date: 20060316
  Transmission Date: 20060701
  Serious: Yes (Life-Threatening)
  Sender: FDA-Public Use
  Company Number: 2006-139885-NL

PATIENT
  Sex: Female

DRUGS (2)
  1. MENOTROPINS [Suspect]
  2. CLOMIPHENE [Concomitant]

REACTIONS (10)
  - ABORTION [None]
  - ANTEPARTUM HAEMORRHAGE [None]
  - BRONCHOPULMONARY DYSPLASIA [None]
  - CAESAREAN SECTION [None]
  - DRUG EXPOSURE DURING PREGNANCY [None]
  - POST PROCEDURAL COMPLICATION [None]
  - PREMATURE BABY [None]
  - PREMATURE RUPTURE OF MEMBRANES [None]
  - PYOMETRA [None]
  - UMBILICAL CORD PROLAPSE [None]
